FAERS Safety Report 11379443 (Version 1)
Quarter: 2015Q3

REPORT INFORMATION
  Report Type: Spontaneous
  Country: GB (occurrence: None)
  Receive Date: 20150812
  Receipt Date: 20150812
  Transmission Date: 20151125
  Serious: Yes (Other)
  Sender: FDA-Public Use
  Company Number: NL01PV15_39420

PATIENT
  Age: 72 Year
  Sex: Male
  Weight: 70 kg

DRUGS (11)
  1. ALLOPURINOL (ALLOPURINOL) [Concomitant]
     Active Substance: ALLOPURINOL
  2. OMEPRAZOLE (OMEPRAZOLE) [Concomitant]
     Active Substance: OMEPRAZOLE
  3. UNKNOWN (TAMSULOSIN) UNKNOWN [Suspect]
     Active Substance: TAMSULOSIN
     Route: 048
     Dates: start: 20150713, end: 20150724
  4. ADCAL (CALCIUM CARBONATE) [Concomitant]
     Active Substance: CALCIUM CARBONATE
  5. CODEINE PHOSPHATE (CODEINE PHOSPHATE) [Concomitant]
     Active Substance: CODEINE PHOSPHATE
  6. LACTULOSE (LACTULOSE) [Concomitant]
     Active Substance: LACTULOSE
  7. THIAMINE (THIAMINE) [Concomitant]
     Active Substance: THIAMINE
  8. VITAMIN B (VITAMIN B COMLEX) [Concomitant]
  9. NAPROXEN (NAPROXEN) [Concomitant]
     Active Substance: NAPROXEN
  10. PARACETAMOL (PARACETAMOL) [Concomitant]
     Active Substance: ACETAMINOPHEN
  11. FEBUXOSTAT. [Concomitant]
     Active Substance: FEBUXOSTAT

REACTIONS (8)
  - Blister [None]
  - Dyspnoea [None]
  - Pruritus [None]
  - Fall [None]
  - Swelling face [None]
  - Mouth swelling [None]
  - Drug hypersensitivity [None]
  - Dizziness [None]

NARRATIVE: CASE EVENT DATE: 20150713
